FAERS Safety Report 6696767-2 (Version None)
Quarter: 2010Q2

REPORT INFORMATION
  Report Type: 
  Country: None (occurrence: None)
  Receive Date: 20100426
  Receipt Date: 20100419
  Transmission Date: 20101027
  Serious: Yes (Other)
  Sender: FDA-Public Use
  Company Number: US-RB-007376-10

PATIENT
  Age: 54 Year
  Sex: Female

DRUGS (2)
  1. SUBOXONE [Suspect]
     Dosage: DOSE VARIES
     Route: 060
     Dates: start: 20100413, end: 20100416
  2. SUBOXONE [Suspect]
     Indication: PAIN
     Dosage: DOSE VARIES
     Route: 060
     Dates: start: 20100413, end: 20100416

REACTIONS (2)
  - DIZZINESS [None]
  - HALLUCINATION [None]
